FAERS Safety Report 8873877 (Version 1)
Quarter: 2012Q4

REPORT INFORMATION
  Report Type: 
  Country: BE (occurrence: BE)
  Receive Date: 20121030
  Receipt Date: 20121030
  Transmission Date: 20130627
  Serious: Yes (Other)
  Sender: FDA-Public Use
  Company Number: PHHY2012BE097348

PATIENT
  Age: 45 Year
  Sex: Male

DRUGS (5)
  1. PREDNISOLONE [Suspect]
     Dosage: 8 DF/day
  2. OFLOXACIN [Suspect]
     Dosage: 4 DF/day
  3. METHYLPREDNISOLONE [Suspect]
     Dosage: 1 ml/kg/day
  4. CICLOSPORIN [Suspect]
     Dosage: 125 mg, BID
     Route: 048
  5. SOLU MEDROL [Suspect]
     Dosage: 125 mg, UNK
     Route: 042

REACTIONS (4)
  - Ciliary hyperaemia [Unknown]
  - Corneal oedema [Unknown]
  - Eye pain [Unknown]
  - Photophobia [Unknown]
